FAERS Safety Report 6766011-6 (Version None)
Quarter: 2010Q2

REPORT INFORMATION
  Report Type: 
  Country: None (occurrence: None)
  Receive Date: 20100611
  Receipt Date: 20100604
  Transmission Date: 20101027
  Serious: Yes (Hospitalization)
  Sender: FDA-Public Use
  Company Number: A0860640B

PATIENT
  Age: 63 Year
  Sex: Female
  Weight: 55.9 kg

DRUGS (19)
  1. MELPHALAN HYDROCHLORIDE [Suspect]
     Indication: AMYLOIDOSIS
     Dates: start: 20100302
  2. VELCADE [Suspect]
     Indication: AMYLOIDOSIS
     Dosage: 1.3MGM2 CYCLIC
     Dates: start: 20100510
  3. DEXAMETHASONE [Suspect]
     Indication: AMYLOIDOSIS
     Dosage: 20MG CYCLIC
     Dates: start: 20100510
  4. ACYCLOVIR [Concomitant]
  5. DOCUSATE [Concomitant]
  6. METOPROLOL TARTRATE [Concomitant]
  7. SPIRONOLACTONE [Concomitant]
  8. FUROSEMIDE [Concomitant]
  9. MAGNESIUM [Concomitant]
  10. ROSUVASTATIN [Concomitant]
  11. OMEPRAZOLE [Concomitant]
  12. SENNA [Concomitant]
  13. POTASSIUM CHLORIDE [Concomitant]
  14. TORSEMIDE [Concomitant]
  15. BENZONATATE [Concomitant]
  16. CODEINE SULFATE [Concomitant]
  17. METOCLOPRAMIDE [Concomitant]
  18. POLYETHYLENE [Concomitant]
  19. COMPAZINE [Concomitant]

REACTIONS (5)
  - GASTROINTESTINAL HAEMORRHAGE [None]
  - HAEMATEMESIS [None]
  - NAUSEA [None]
  - THROMBOCYTOPENIA [None]
  - VOMITING [None]
